FAERS Safety Report 9441262 (Version 1)
Quarter: 2013Q3

REPORT INFORMATION
  Report Type: Spontaneous
  Country: US (occurrence: US)
  Receive Date: 20130805
  Receipt Date: 20130805
  Transmission Date: 20140515
  Serious: Yes (Disabling, Other)
  Sender: FDA-Public Use
  Company Number: US-TEVA-423014USA

PATIENT
  Age: 69 Year
  Sex: Female

DRUGS (3)
  1. ALENDRONIC ACID [Suspect]
  2. FOSAMAX [Suspect]
  3. ACTONEL [Suspect]

REACTIONS (4)
  - Femur fracture [Unknown]
  - Fracture [Unknown]
  - Bone disorder [Unknown]
  - Low turnover osteopathy [Unknown]
